FAERS Safety Report 9149486 (Version 1)
Quarter: 2013Q1

REPORT INFORMATION
  Report Type: Spontaneous
  Country: US (occurrence: None)
  Receive Date: 20130228
  Receipt Date: 20130228
  Transmission Date: 20140127
  Serious: Yes (Hospitalization)
  Sender: FDA-Public Use
  Company Number: None

PATIENT
  Sex: Male
  Weight: 83.4 kg

DRUGS (2)
  1. CASODEX [Suspect]
  2. LEUPROLIDE ACETATE [Suspect]

REACTIONS (2)
  - Cerebrovascular accident [None]
  - Transient ischaemic attack [None]
